FAERS Safety Report 4304081-5 (Version None)
Quarter: 2004Q1

REPORT INFORMATION
  Report Type: 
  Country: None (occurrence: None)
  Receive Date: 20040224
  Receipt Date: 20040211
  Transmission Date: 20041129
  Serious: No
  Sender: FDA-Public Use
  Company Number: 04P-020-0250231-00

PATIENT
  Age: 39 Year
  Sex: Female
  Weight: 51 kg

DRUGS (4)
  1. HUMIRA [Suspect]
     Indication: RHEUMATOID ARTHRITIS
     Dosage: 40 MG, 1 IN 2 WK, SUBCUTANEOUS
     Route: 058
     Dates: start: 20030827, end: 20040211
  2. PREDNISONE [Concomitant]
  3. CHLOROQUINE [Concomitant]
  4. DICLOFENAC SODIUM [Concomitant]

REACTIONS (4)
  - HYPERPLASIA [None]
  - NAUSEA [None]
  - PYREXIA [None]
  - TONGUE ULCERATION [None]
